FAERS Safety Report 16128861 (Version 1)
Quarter: 2019Q1

REPORT INFORMATION
  Report Type: Spontaneous
  Country: US (occurrence: US)
  Receive Date: 20190328
  Receipt Date: 20190328
  Transmission Date: 20190418
  Serious: No
  Sender: FDA-Public Use
  Company Number: US-MIKART, INC.-2064832

PATIENT
  Age: 45 Year
  Sex: Male

DRUGS (1)
  1. CHLORZOXAZONE. [Suspect]
     Active Substance: CHLORZOXAZONE
     Route: 048

REACTIONS (2)
  - Nausea [Unknown]
  - Hyperchlorhydria [Unknown]
